FAERS Safety Report 17940463 (Version 3)
Quarter: 2022Q4

REPORT INFORMATION
  Report Type: Spontaneous
  Country: US (occurrence: US)
  Receive Date: 20200625
  Receipt Date: 20221012
  Transmission Date: 20230113
  Serious: Yes (Death, Other)
  Sender: FDA-Public Use
  Company Number: US-SAARTEMIS-SAC202006180119

PATIENT
  Age: 55 Year
  Sex: Female

DRUGS (1)
  1. ZANTAC [Suspect]
     Active Substance: RANITIDINE HYDROCHLORIDE
     Indication: Dyspepsia
     Dosage: UNK(FREQUENCY: OTHER)
     Route: 065
     Dates: start: 200101, end: 201501

REACTIONS (2)
  - Pancreatic carcinoma stage IV [Fatal]
  - Breast cancer stage II [Fatal]

NARRATIVE: CASE EVENT DATE: 20130601
